FAERS Safety Report 4652431-2 (Version None)
Quarter: 2005Q2

REPORT INFORMATION
  Report Type: 
  Country: None (occurrence: None)
  Receive Date: 20050504
  Receipt Date: 20050420
  Transmission Date: 20051028
  Serious: Yes (Death)
  Sender: FDA-Public Use
  Company Number: US-GLAXOSMITHKLINE-A0554920A

PATIENT
  Age: 76 Year
  Sex: Female

DRUGS (1)
  1. NICODERM CQ [Suspect]
     Route: 062
     Dates: start: 20020101

REACTIONS (4)
  - CARDIAC FAILURE CONGESTIVE [None]
  - DEATH [None]
  - HALLUCINATION [None]
  - INSOMNIA [None]
